FAERS Safety Report 15606968 (Version 1)
Quarter: 2018Q4

REPORT INFORMATION
  Report Type: Spontaneous
  Country: US (occurrence: US)
  Receive Date: 20181111
  Receipt Date: 20181111
  Transmission Date: 20190205
  Serious: Yes (Hospitalization, Disabling)
  Sender: FDA-Public Use
  Company Number: None

PATIENT
  Age: 53 Year
  Sex: Male
  Weight: 66.6 kg

DRUGS (4)
  1. CLONAZEPAM. [Suspect]
     Active Substance: CLONAZEPAM
     Indication: ANXIETY
     Dosage: ?          QUANTITY:1 TABLET(S);?
     Route: 048
     Dates: start: 20140101
  2. VALIUM [Concomitant]
     Active Substance: DIAZEPAM
  3. MULTI-VITAMIN [Concomitant]
     Active Substance: .ALPHA.-TOCOPHEROL ACETATE, DL-\ASCORBIC ACID\CYANOCOBALAMIN\FLUORIDE ION\FOLIC ACID\NIACIN\PYRIDOXINE\RIBOFLAVIN\THIAMINE\VITAMIN A\VITAMIN D
  4. CLONAZEPAM. [Suspect]
     Active Substance: CLONAZEPAM
     Indication: PANIC ATTACK
     Dosage: ?          QUANTITY:1 TABLET(S);?
     Route: 048
     Dates: start: 20140101

REACTIONS (20)
  - Fatigue [None]
  - Panic attack [None]
  - Sleep disorder [None]
  - Musculoskeletal pain [None]
  - Ventricular extrasystoles [None]
  - Balance disorder [None]
  - Suicide attempt [None]
  - Confusional state [None]
  - Neck pain [None]
  - Suicidal ideation [None]
  - Headache [None]
  - Photophobia [None]
  - Depression [None]
  - Insomnia [None]
  - Tinnitus [None]
  - Tachycardia [None]
  - Anxiety [None]
  - Vertigo [None]
  - Myalgia [None]
  - Nightmare [None]

NARRATIVE: CASE EVENT DATE: 20161115
